FAERS Safety Report 9688824 (Version 3)
Quarter: 2016Q4

REPORT INFORMATION
  Report Type: Report from Study
  Country: US (occurrence: US)
  Receive Date: 20131114
  Receipt Date: 20161201
  Transmission Date: 20170207
  Serious: Yes (Other)
  Sender: FDA-Public Use
  Company Number: US-ROCHE-1303274

PATIENT

DRUGS (2)
  1. RITUXIMAB [Suspect]
     Active Substance: RITUXIMAB
     Indication: DIFFUSE LARGE B-CELL LYMPHOMA
     Route: 042
  2. BENDAMUSTINE [Suspect]
     Active Substance: BENDAMUSTINE
     Indication: DIFFUSE LARGE B-CELL LYMPHOMA
     Dosage: 90 MG/M2 TO 120 MG/M2
     Route: 042

REACTIONS (23)
  - Anaemia [Unknown]
  - Thrombocytopenia [Unknown]
  - Fatigue [Unknown]
  - Lymphocytosis [Unknown]
  - Atrial fibrillation [Unknown]
  - Myalgia [Unknown]
  - Arthralgia [Unknown]
  - Cardiac failure [Unknown]
  - Sepsis [Unknown]
  - Lymphopenia [Unknown]
  - Hyperglycaemia [Unknown]
  - Cognitive disorder [Unknown]
  - Infusion related reaction [Unknown]
  - Pleural effusion [Unknown]
  - Neutropenia [Unknown]
  - Urinary tract infection [Unknown]
  - Hyponatraemia [Unknown]
  - Nausea [Unknown]
  - Failure to thrive [Unknown]
  - Hypoalbuminaemia [Unknown]
  - Rash maculo-papular [Unknown]
  - Skin infection [Unknown]
  - Muscular weakness [Unknown]
